FAERS Safety Report 8958659 (Version 1)
Quarter: 2012Q4

REPORT INFORMATION
  Report Type: Spontaneous
  Country: GB (occurrence: None)
  Receive Date: 20121128
  Receipt Date: 20121128
  Transmission Date: 20130627
  Serious: Yes (Death, Hospitalization)
  Sender: FDA-Public Use
  Company Number: 2012-01719

PATIENT
  Age: 91 Year
  Sex: Male

DRUGS (7)
  1. SIMVASTATIN [Suspect]
     Indication: DRUG USED FOR UNKNOWN INDICATION
     Dosage: Unknown (40 mg, UNK), Oral
     Route: 048
     Dates: end: 20121024
  2. AMIODARONE [Suspect]
     Indication: VENTRICULAR TACHYCARDIA
     Dosage: 200 mg (200 mg, 1 in 1), Oral
     Route: 048
     Dates: start: 201012, end: 20121024
  3. ASPIRIN (UNKNOWN) [Concomitant]
  4. BISOPROLOL (UNKNOWN) [Concomitant]
  5. DOXAZOSIN (UNKNOWN) [Concomitant]
  6. FRUSEMIDE (UNKNOWN) [Concomitant]
  7. PERINDOPRIL (UNKNOWN) (PERINDOPRIL) [Concomitant]

REACTIONS (1)
  - Pulmonary fibrosis [None]
